FAERS Safety Report 7476513-5 (Version None)
Quarter: 2011Q2

REPORT INFORMATION
  Report Type: 
  Country: None (occurrence: None)
  Receive Date: 20110512
  Receipt Date: 20110422
  Transmission Date: 20111010
  Serious: No
  Sender: FDA-Public Use
  Company Number: US-B.I. PHARMACEUTICALS,INC./RIDGEFIELD-2011-BP-06195BP

PATIENT
  Sex: Male

DRUGS (11)
  1. ZYRTEC [Concomitant]
  2. TRILIPIX [Concomitant]
  3. PRADAXA [Suspect]
     Indication: ATRIAL FIBRILLATION
     Dosage: 300 MG
     Route: 048
     Dates: start: 20110101
  4. GABAPENTIN [Concomitant]
     Indication: FIBROMYALGIA
     Dates: start: 20100101
  5. CYMBALTA [Concomitant]
  6. PRILOSEC [Concomitant]
  7. CYTRA-K-CRYSTALS [Concomitant]
  8. MULTAQ [Concomitant]
     Indication: ATRIAL FIBRILLATION
  9. CRESTOR [Concomitant]
     Indication: BLOOD CHOLESTEROL INCREASED
     Dates: start: 20070101
  10. ALLOPURINOL [Concomitant]
     Indication: GOUT
  11. TYLENOL W/ CODEINE NO. 3 [Concomitant]

REACTIONS (2)
  - LOSS OF CONTROL OF LEGS [None]
  - MUSCLE SPASMS [None]
